FAERS Safety Report 6086834-9 (Version None)
Quarter: 2009Q1

REPORT INFORMATION
  Report Type: 
  Country: None (occurrence: None)
  Receive Date: 20090223
  Receipt Date: 20090209
  Transmission Date: 20090719
  Serious: Yes (Hospitalization)
  Sender: FDA-Public Use
  Company Number: ES-ELI_LILLY_AND_COMPANY-ES200902002698

PATIENT
  Age: 68 Year
  Sex: Female

DRUGS (13)
  1. FORTEO [Suspect]
     Indication: OSTEOPOROSIS
     Dosage: 20 UG, UNKNOWN
     Route: 058
     Dates: start: 20081001, end: 20090101
  2. CORTISON [Concomitant]
     Dosage: UNK, UNKNOWN
     Route: 065
  3. LEVOTHROID [Concomitant]
     Dosage: 50 MG, UNKNOWN
     Route: 065
  4. CARDIL [Concomitant]
     Dosage: 20 MG, UNKNOWN
     Route: 065
  5. LEXATIN [Concomitant]
     Dosage: UNK, UNKNOWN
     Route: 065
  6. CALCIUM [Concomitant]
     Dosage: UNK, UNKNOWN
     Route: 065
  7. VITAMINS [Concomitant]
     Dosage: UNK, UNKNOWN
     Route: 065
  8. HIDROFEROL [Concomitant]
     Dosage: UNK, UNKNOWN
     Route: 065
  9. FOSAMAX [Concomitant]
     Dosage: UNK, UNKNOWN
     Route: 065
  10. COVERSYL [Concomitant]
     Dosage: 4 MG, UNKNOWN
     Route: 065
  11. PERTENSAL [Concomitant]
     Dosage: UNK, DAILY (1/D)
     Route: 065
  12. PREDNISONE TAB [Concomitant]
     Dosage: UNK, UNKNOWN
     Route: 065
  13. XUMADOL [Concomitant]
     Indication: ANALGESIA
     Dosage: UNK, UNKNOWN
     Route: 065

REACTIONS (8)
  - FATIGUE [None]
  - FLATULENCE [None]
  - MEDICAL DEVICE REMOVAL [None]
  - MUSCLE INJURY [None]
  - OEDEMA PERIPHERAL [None]
  - PULMONARY INFARCTION [None]
  - PULMONARY THROMBOSIS [None]
  - VOMITING [None]
